FAERS Safety Report 17041742 (Version 1)
Quarter: 2019Q4

REPORT INFORMATION
  Report Type: Spontaneous
  Country: CA (occurrence: CA)
  Receive Date: 20191118
  Receipt Date: 20191118
  Transmission Date: 20200122
  Serious: Yes (Death, Hospitalization)
  Sender: FDA-Public Use
  Company Number: CA-TEVA-2019-CA-1136778

PATIENT
  Age: 73 Year
  Sex: Male
  Weight: 98 kg

DRUGS (2)
  1. PREDNISONE. [Suspect]
     Active Substance: PREDNISONE
     Indication: CROHN^S DISEASE
     Dosage: 40 MILLIGRAM DAILY;
     Route: 048
  2. INFLIXIMAB [Suspect]
     Active Substance: INFLIXIMAB
     Indication: CROHN^S DISEASE
     Route: 042

REACTIONS (7)
  - Multiple organ dysfunction syndrome [Fatal]
  - Acute kidney injury [Fatal]
  - Ascites [Fatal]
  - Atrial fibrillation [Fatal]
  - Crohn^s disease [Fatal]
  - Post procedural sepsis [Fatal]
  - Pulmonary embolism [Fatal]
